FAERS Safety Report 10188227 (Version 1)
Quarter: 2014Q2

REPORT INFORMATION
  Report Type: Spontaneous
  Country: US (occurrence: None)
  Receive Date: 20140521
  Receipt Date: 20140521
  Transmission Date: 20141212
  Serious: Yes (Other)
  Sender: FDA-Public Use
  Company Number: None

PATIENT
  Age: 68 Year
  Sex: Male
  Weight: 79.38 kg

DRUGS (1)
  1. TERBINAFINE [Suspect]
     Indication: ONYCHOMYCOSIS
     Dosage: 1 PILL, ONCE DAILY, TAKEN BY MOUTH
     Route: 048

REACTIONS (2)
  - Ageusia [None]
  - Dysgeusia [None]
